FAERS Safety Report 4599202-3 (Version None)
Quarter: 2005Q2

REPORT INFORMATION
  Report Type: 
  Country: None (occurrence: None)
  Receive Date: 20050207
  Receipt Date: 20041215
  Transmission Date: 20051028
  Serious: Yes (Other)
  Sender: FDA-Public Use
  Company Number: PROG00204004367

PATIENT
  Sex: Female

DRUGS (1)
  1. PROMETRIUM [Suspect]
     Indication: HORMONE REPLACEMENT THERAPY
     Dosage: DAILY; ORAL
     Route: 048
     Dates: start: 19950101, end: 20020101

REACTIONS (1)
  - BREAST CANCER [None]
